FAERS Safety Report 5605206-1 (Version None)
Quarter: 2008Q1

REPORT INFORMATION
  Report Type: 
  Country: None (occurrence: None)
  Receive Date: 20080128
  Receipt Date: 20080117
  Transmission Date: 20080703
  Serious: Yes (Hospitalization, Other)
  Sender: FDA-Public Use
  Company Number: US-PFIZER INC-001-0981-M0107389

PATIENT
  Sex: Male
  Weight: 98.4 kg

DRUGS (17)
  1. LIPITOR [Suspect]
     Indication: BLOOD CHOLESTEROL INCREASED
     Dosage: DAILY DOSE:40MG-FREQ:DAILY
     Route: 048
  2. NEURONTIN [Suspect]
     Indication: NEUROPATHY PERIPHERAL
  3. ATENOLOL [Suspect]
  4. ASPIRIN [Suspect]
  5. PLAVIX [Suspect]
  6. BETA BLOCKING AGENTS [Suspect]
  7. CARDIAC THERAPY [Concomitant]
  8. AMBIEN [Concomitant]
  9. AMIODARONE [Concomitant]
  10. DIGOXIN [Concomitant]
  11. PAXIL [Concomitant]
  12. FUROSEMIDE [Concomitant]
  13. CYCLOBENZAPRINE HCL [Concomitant]
  14. GLYCERYL TRINITRATE [Concomitant]
  15. AMITRIPTYLINE HCL [Concomitant]
  16. POTASSIUM CHLORIDE [Concomitant]
  17. BETA BLOCKING AGENTS [Concomitant]

REACTIONS (7)
  - BLOOD CHOLESTEROL INCREASED [None]
  - CARDIAC OPERATION [None]
  - CONTUSION [None]
  - DEPRESSION [None]
  - DIABETES MELLITUS [None]
  - JOINT SWELLING [None]
  - NEUROPATHY PERIPHERAL [None]
